FAERS Safety Report 7869508-0 (Version None)
Quarter: 2011Q4

REPORT INFORMATION
  Report Type: 
  Country: None (occurrence: None)
  Receive Date: 20111028
  Receipt Date: 20110104
  Transmission Date: 20120403
  Serious: No
  Sender: FDA-Public Use
  Company Number: US-AMGEN-USASP2011000428

PATIENT
  Sex: Female

DRUGS (1)
  1. ENBREL [Suspect]
     Indication: RHEUMATOID ARTHRITIS
     Dosage: 50 MG, QWK
     Dates: start: 20040801

REACTIONS (7)
  - NAUSEA [None]
  - TOOTH ABSCESS [None]
  - JOINT INJURY [None]
  - RHEUMATOID ARTHRITIS [None]
  - TOOTH IMPACTED [None]
  - GASTRIC DISORDER [None]
  - DIARRHOEA [None]
